FAERS Safety Report 5831077-4 (Version None)
Quarter: 2008Q3

REPORT INFORMATION
  Report Type: 
  Country: None (occurrence: None)
  Receive Date: 20080801
  Receipt Date: 20080327
  Transmission Date: 20090109
  Serious: Yes (Other)
  Sender: FDA-Public Use
  Company Number: US-BRISTOL-MYERS SQUIBB COMPANY-14128797

PATIENT
  Age: 57 Year
  Sex: Female

DRUGS (7)
  1. COUMADIN [Suspect]
  2. BOTOX [Suspect]
     Indication: SCOLIOSIS
     Dosage: 1 DOSAGE FORM=1 VIAL
     Dates: start: 20080304
  3. COREG [Concomitant]
  4. LISINOPRIL [Concomitant]
  5. ALLEGRA [Concomitant]
  6. VYTORIN [Concomitant]
  7. CYCLOBENZAPRINE HCL [Concomitant]

REACTIONS (1)
  - INCISION SITE HAEMORRHAGE [None]
